FAERS Safety Report 5717342-X (Version None)
Quarter: 2008Q2

REPORT INFORMATION
  Report Type: 
  Country: None (occurrence: None)
  Receive Date: 20080424
  Receipt Date: 20080424
  Transmission Date: 20081010
  Serious: Yes (Hospitalization)
  Sender: FDA-Public Use
  Company Number: None

PATIENT
  Age: 9 Year
  Sex: Female
  Weight: 27.2158 kg

DRUGS (1)
  1. SINGULAIR [Suspect]
     Dosage: 1 TABLET DAILY PO
     Route: 048
     Dates: start: 20080207, end: 20080415

REACTIONS (2)
  - ABDOMINAL PAIN UPPER [None]
  - PANIC ATTACK [None]
